FAERS Safety Report 7426154-0 (Version None)
Quarter: 2011Q2

REPORT INFORMATION
  Report Type: 
  Country: None (occurrence: None)
  Receive Date: 20110420
  Receipt Date: 20110413
  Transmission Date: 20111010
  Serious: Yes (Other)
  Sender: FDA-Public Use
  Company Number: PHEH2010US03391

PATIENT
  Sex: Female

DRUGS (8)
  1. LEXAPRO [Concomitant]
  2. PROVENTIL [Concomitant]
  3. HYDROCHLOROTHIAZIDE [Concomitant]
  4. ZELNORM [Suspect]
     Dosage: UNK
     Route: 048
     Dates: start: 20030101
  5. TRAZODONE HCL [Concomitant]
  6. KLONOPIN [Concomitant]
  7. NIZATIDINE [Concomitant]
  8. SEROQUEL [Concomitant]

REACTIONS (6)
  - INJURY [None]
  - DYSPNOEA [None]
  - CHEST PAIN [None]
  - MYOFASCIAL PAIN SYNDROME [None]
  - ASTHMA [None]
  - SUPRAVENTRICULAR EXTRASYSTOLES [None]
